FAERS Safety Report 12835563 (Version 2)
Quarter: 2016Q4

REPORT INFORMATION
  Report Type: Spontaneous
  Country: FR (occurrence: FR)
  Receive Date: 20161011
  Receipt Date: 20161212
  Transmission Date: 20170207
  Serious: Yes (Hospitalization)
  Sender: FDA-Public Use
  Company Number: FR-ORION CORPORATION ORION PHARMA-ENT 2016-0200

PATIENT
  Age: 74 Year
  Sex: Male
  Weight: 92 kg

DRUGS (7)
  1. MODOPAR [Concomitant]
     Active Substance: BENSERAZIDE HYDROCHLORIDE\LEVODOPA
     Route: 065
  2. LASILIX [Concomitant]
     Active Substance: FUROSEMIDE
     Route: 065
  3. BENSERAZIDE [Concomitant]
     Active Substance: BENSERAZIDE
     Route: 065
  4. LEVODOPA [Concomitant]
     Active Substance: LEVODOPA
     Route: 065
  5. COMTAN [Suspect]
     Active Substance: ENTACAPONE
     Indication: PARKINSON^S DISEASE
     Dosage: STRENGTH: 200 MG, 1 TABLET AT 7:00, 11:00, 15:00 AND 19:00
     Route: 048
     Dates: start: 20160912, end: 20160922
  6. AZILECT [Concomitant]
     Active Substance: RASAGILINE MESYLATE
     Route: 065
  7. MODOPAR LP [Concomitant]
     Active Substance: BENSERAZIDE HYDROCHLORIDE\LEVODOPA
     Route: 065

REACTIONS (2)
  - Diarrhoea [Recovered/Resolved]
  - Dry mouth [Recovered/Resolved]

NARRATIVE: CASE EVENT DATE: 20160920
